FAERS Safety Report 6074411-5 (Version None)
Quarter: 2009Q1

REPORT INFORMATION
  Report Type: 
  Country: None (occurrence: None)
  Receive Date: 20090206
  Receipt Date: 20090122
  Transmission Date: 20090719
  Serious: Yes (Hospitalization)
  Sender: FDA-Public Use
  Company Number: 8042223

PATIENT
  Age: 48 Year
  Sex: Male

DRUGS (1)
  1. KEPPRA [Suspect]
     Dosage: 8000 MG ONCE PO
     Route: 048
     Dates: start: 20090122, end: 20090122

REACTIONS (2)
  - ACCIDENTAL EXPOSURE [None]
  - INCORRECT DOSE ADMINISTERED [None]
